FAERS Safety Report 6912979-4 (Version None)
Quarter: 2010Q3

REPORT INFORMATION
  Report Type: 
  Country: None (occurrence: None)
  Receive Date: 20100806
  Receipt Date: 20090423
  Transmission Date: 20110219
  Serious: No
  Sender: FDA-Public Use
  Company Number: US-PFIZER INC-2009203593

PATIENT
  Sex: Female

DRUGS (7)
  1. DETROL [Suspect]
     Dosage: UNK
  2. CALCIUM [Concomitant]
     Dosage: UNK
  3. LOPRESSOR [Concomitant]
     Dosage: UNK
  4. RAMIPRIL [Concomitant]
     Dosage: UNK
  5. ZOCOR [Concomitant]
     Dosage: UNK
  6. FOLIC ACID [Concomitant]
     Dosage: UNK
  7. CENTRUM [Concomitant]
     Dosage: UNK

REACTIONS (1)
  - POLLAKIURIA [None]
